FAERS Safety Report 8896379 (Version 3)
Quarter: 2012Q4

REPORT INFORMATION
  Report Type: 
  Country: US (occurrence: None)
  Receive Date: 20121109
  Receipt Date: 20121127
  Transmission Date: 20130627
  Serious: Yes (Death)
  Sender: FDA-Public Use
  Company Number: None

PATIENT
  Age: 79 Year
  Sex: Female
  Weight: 63.96 kg

DRUGS (1)
  1. CARDIOPLEGIA SOLUTION [Suspect]
     Indication: CARDIAC OPERATION

REACTIONS (6)
  - Infection [None]
  - Fungal infection [None]
  - Pleural effusion [None]
  - Pericardial effusion [None]
  - Device related infection [None]
  - Candida test positive [None]
